FAERS Safety Report 7744907-6 (Version None)
Quarter: 2011Q3

REPORT INFORMATION
  Report Type: 
  Country: None (occurrence: None)
  Receive Date: 20110913
  Receipt Date: 20110905
  Transmission Date: 20111222
  Serious: Yes (Hospitalization)
  Sender: FDA-Public Use
  Company Number: IL-BIOGENIDEC-2010BI012335

PATIENT
  Age: 33 Year
  Sex: Female

DRUGS (13)
  1. BACLOSAL [Concomitant]
     Indication: MUSCLE SPASTICITY
  2. EFFEXOR [Concomitant]
     Indication: SLEEP DISORDER
     Route: 048
     Dates: start: 20050101
  3. BONDORMIN [Concomitant]
     Route: 048
     Dates: start: 20080101
  4. OXYCONTIN [Concomitant]
     Indication: PAIN
     Route: 048
  5. MARCAINE [Concomitant]
     Indication: MUSCLE SPASTICITY
  6. MARCAINE [Concomitant]
     Indication: PAIN
  7. EFFEXOR [Concomitant]
     Indication: DEPRESSION
     Route: 048
     Dates: start: 20050101
  8. BONDORMIN [Concomitant]
     Indication: SLEEP DISORDER
     Route: 048
     Dates: start: 20080101
  9. BACLOSAL [Concomitant]
     Indication: PAIN
  10. NEURONTIN [Concomitant]
     Indication: PAIN
     Route: 048
     Dates: start: 20000101
  11. TYSABRI [Suspect]
     Indication: PROGRESSIVE RELAPSING MULTIPLE SCLEROSIS
     Route: 042
     Dates: start: 20090901, end: 20100301
  12. MORPHINE [Concomitant]
     Indication: MUSCLE SPASTICITY
  13. MORPHINE [Concomitant]
     Indication: PAIN

REACTIONS (1)
  - HEPATITIS ACUTE [None]
